FAERS Safety Report 8975631 (Version 3)
Quarter: 2013Q3

REPORT INFORMATION
  Report Type: Spontaneous
  Country: DK (occurrence: DK)
  Receive Date: 20121219
  Receipt Date: 20130805
  Transmission Date: 20140515
  Serious: Yes (Death, Other)
  Sender: FDA-Public Use
  Company Number: PHHY2012DK114661

PATIENT
  Sex: Female

DRUGS (4)
  1. ZOMETA [Suspect]
     Indication: METASTASES TO BONE
     Dosage: 4 MG/100 ML
     Route: 042
     Dates: start: 201011, end: 20101223
  2. BONDRONAT [Suspect]
     Indication: METASTASES TO BONE
     Dosage: 50 MG QD
     Route: 048
     Dates: start: 200505, end: 201112
  3. BONDRONAT [Suspect]
     Dosage: STYRKE: 50 MG
     Route: 048
     Dates: start: 200505, end: 201112
  4. ARIMIDEX [Concomitant]
     Indication: BREAST CANCER FEMALE
     Route: 048
     Dates: start: 20090618, end: 20111201

REACTIONS (11)
  - Breast cancer [Fatal]
  - Metastasis [Fatal]
  - Osteonecrosis of jaw [Not Recovered/Not Resolved]
  - Fistula [Unknown]
  - Tooth infection [Unknown]
  - Breath odour [Unknown]
  - Exposed bone in jaw [Unknown]
  - Swelling [Unknown]
  - Erythema [Unknown]
  - Tooth loss [Unknown]
  - Sinusitis [Unknown]
